FAERS Safety Report 8579112-7 (Version None)
Quarter: 2012Q3

REPORT INFORMATION
  Report Type: 
  Country: None (occurrence: None)
  Receive Date: 20120808
  Receipt Date: 20120803
  Transmission Date: 20120928
  Serious: Yes (Hospitalization)
  Sender: FDA-Public Use
  Company Number: US-PFIZER INC-2012189448

PATIENT
  Age: 61 Year
  Sex: Female
  Weight: 63.5 kg

DRUGS (5)
  1. LYRICA [Suspect]
     Indication: NEUROPATHY PERIPHERAL
     Dosage: 75 MG, 3X/DAY
     Route: 048
     Dates: start: 20050601
  2. CHANTIX [Concomitant]
     Indication: SMOKING CESSATION THERAPY
     Dosage: UNK
  3. LYRICA [Suspect]
     Indication: NERVE COMPRESSION
  4. LOPRESSOR [Concomitant]
     Indication: HYPERTENSION
     Dosage: 50 MG, 2X/DAY
  5. LYRICA [Suspect]
     Indication: SURGERY
     Dosage: UNK
     Route: 048

REACTIONS (3)
  - CHRONIC OBSTRUCTIVE PULMONARY DISEASE [None]
  - WEIGHT INCREASED [None]
  - EMPHYSEMA [None]
